FAERS Safety Report 15434993 (Version 1)
Quarter: 2018Q3

REPORT INFORMATION
  Report Type: Spontaneous
  Country: US (occurrence: US)
  Receive Date: 20180924
  Receipt Date: 20180924
  Transmission Date: 20181010
  Serious: Yes (Life-Threatening, Hospitalization, Disabling)
  Sender: FDA-Public Use
  Company Number: None

PATIENT
  Age: 62 Year
  Sex: Male
  Weight: 114.75 kg

DRUGS (2)
  1. IBUPROFEN. [Suspect]
     Active Substance: IBUPROFEN
  2. IC NAPROXEN 500MG [Suspect]
     Active Substance: NAPROXEN
     Indication: BACK PAIN

REACTIONS (2)
  - Drug hypersensitivity [None]
  - Dysuria [None]

NARRATIVE: CASE EVENT DATE: 20170313
